FAERS Safety Report 13441726 (Version 1)
Quarter: 2017Q2

REPORT INFORMATION
  Report Type: Report from Study
  Country: CA (occurrence: CA)
  Receive Date: 20170414
  Receipt Date: 20170414
  Transmission Date: 20170830
  Serious: Yes (Other)
  Sender: FDA-Public Use
  Company Number: CA-UCBSA-2017009981

PATIENT
  Age: 59 Year
  Sex: Female

DRUGS (4)
  1. MACROBID [Concomitant]
     Active Substance: NITROFURANTOIN\NITROFURANTOIN MONOHYDRATE
     Indication: URINARY TRACT INFECTION
     Dosage: 100 MG, 2X/DAY (BID)
     Route: 048
     Dates: start: 2017
  2. CEFALEX [Concomitant]
     Indication: ABSCESS
     Dosage: 500 MG, 4X/DAY (QID)
     Route: 048
  3. CERTOLIZUMAB PEGOL RA [Suspect]
     Active Substance: CERTOLIZUMAB PEGOL
     Dosage: 400 MG, EV 2 WEEKS(QOW)
     Route: 058
     Dates: start: 20170323, end: 20170323
  4. CERTOLIZUMAB PEGOL RA [Suspect]
     Active Substance: CERTOLIZUMAB PEGOL
     Indication: RHEUMATOID ARTHRITIS
     Dosage: 400 MG, EV 2 WEEKS(QOW)
     Route: 058
     Dates: start: 20170223, end: 20170223

REACTIONS (3)
  - Urinary tract infection [Unknown]
  - Abscess [Unknown]
  - Inguinal mass [Recovering/Resolving]

NARRATIVE: CASE EVENT DATE: 2017
